FAERS Safety Report 12843298 (Version 4)
Quarter: 2016Q4

REPORT INFORMATION
  Report Type: Report from Study
  Country: US (occurrence: US)
  Receive Date: 20161013
  Receipt Date: 20161221
  Transmission Date: 20170207
  Serious: No
  Sender: FDA-Public Use
  Company Number: PHEH2016US025806

PATIENT
  Age: 56 Year
  Sex: Female

DRUGS (2)
  1. COSENTYX [Suspect]
     Active Substance: SECUKINUMAB
     Indication: PSORIATIC ARTHROPATHY
  2. COSENTYX [Suspect]
     Active Substance: SECUKINUMAB
     Indication: PSORIASIS
     Dosage: 150 MG, QW
     Route: 058
     Dates: start: 20160808

REACTIONS (6)
  - Cough [Unknown]
  - Injection site erythema [Unknown]
  - Productive cough [Unknown]
  - Sinusitis [Unknown]
  - Injection site pruritus [Unknown]
  - Bronchitis [Unknown]

NARRATIVE: CASE EVENT DATE: 20160929
